FAERS Safety Report 15530508 (Version 1)
Quarter: 2018Q4

REPORT INFORMATION
  Report Type: Spontaneous
  Country: US (occurrence: US)
  Receive Date: 20181018
  Receipt Date: 20181018
  Transmission Date: 20190205
  Serious: No
  Sender: FDA-Public Use
  Company Number: US-TEVA-2018-US-962777

PATIENT
  Sex: Female

DRUGS (3)
  1. CLONAZEPAM ACTAVIS [Suspect]
     Active Substance: CLONAZEPAM
     Dates: start: 2014
  2. CLONAZEPAM TEVA [Suspect]
     Active Substance: CLONAZEPAM
     Dates: start: 2014
  3. LIPITOR [Concomitant]
     Active Substance: ATORVASTATIN CALCIUM
     Route: 065

REACTIONS (9)
  - Lethargy [Unknown]
  - Panic attack [Unknown]
  - Tinnitus [Unknown]
  - Nervousness [Unknown]
  - Poor quality sleep [Unknown]
  - Malaise [Unknown]
  - Influenza [Unknown]
  - Feeling jittery [Unknown]
  - Feeling abnormal [Unknown]
